FAERS Safety Report 22115763 (Version 1)
Quarter: 2023Q1

REPORT INFORMATION
  Report Type: Spontaneous
  Country: US (occurrence: US)
  Receive Date: 20230320
  Receipt Date: 20230320
  Transmission Date: 20230418
  Serious: Yes (Other)
  Sender: FDA-Public Use
  Company Number: US-SA-SAC20230317000785

PATIENT
  Age: 69 Day
  Sex: Female

DRUGS (1)
  1. DUPIXENT [Suspect]
     Active Substance: DUPILUMAB
     Indication: Dermatitis atopic
     Dosage: 300 MG, QOW
     Route: 058
     Dates: start: 202201

REACTIONS (5)
  - Burn oral cavity [Unknown]
  - Food allergy [Unknown]
  - Oral mucosal blistering [Unknown]
  - Gingival blister [Unknown]
  - Gingival discomfort [Unknown]
